FAERS Safety Report 8508654-5 (Version None)
Quarter: 2012Q3

REPORT INFORMATION
  Report Type: 
  Country: None (occurrence: None)
  Receive Date: 20120713
  Receipt Date: 20120709
  Transmission Date: 20120928
  Serious: Yes (Other)
  Sender: FDA-Public Use
  Company Number: US-PFIZER INC-2012165115

PATIENT

DRUGS (1)
  1. XALKORI [Suspect]
     Dosage: UNK

REACTIONS (2)
  - NEOPLASM MALIGNANT [None]
  - INFLAMMATORY MYOFIBROBLASTIC TUMOUR [None]
